FAERS Safety Report 21263561 (Version 3)
Quarter: 2022Q3

REPORT INFORMATION
  Report Type: Spontaneous
  Country: US (occurrence: US)
  Receive Date: 20220829
  Receipt Date: 20220921
  Transmission Date: 20221027
  Serious: Yes (Other)
  Sender: FDA-Public Use
  Company Number: US-SANOFI-01245031

PATIENT

DRUGS (1)
  1. LANTUS SOLOSTAR [Suspect]
     Active Substance: INSULIN GLARGINE
     Indication: Type 2 diabetes mellitus
     Dosage: 60 IU, QD

REACTIONS (5)
  - Neoplasm malignant [Unknown]
  - Weight decreased [Unknown]
  - Pollakiuria [Unknown]
  - Injection site pain [Unknown]
  - Product dose omission issue [Unknown]
